FAERS Safety Report 7783163-X (Version None)
Quarter: 2011Q3

REPORT INFORMATION
  Report Type: 
  Country: None (occurrence: None)
  Receive Date: 20110928
  Receipt Date: 20110919
  Transmission Date: 20111222
  Serious: Yes (Other)
  Sender: FDA-Public Use
  Company Number: TR-BRISTOL-MYERS SQUIBB COMPANY-16071219

PATIENT
  Age: 63 Year
  Sex: Female

DRUGS (1)
  1. MITOMYCIN [Suspect]
     Dosage: 1DF:0.2MG/ML FOR 2 MIN; ALSO PRESCRIBED 0.02 PERCENT - 4TIMES/DAY.
     Route: 061

REACTIONS (1)
  - DERMATITIS CONTACT [None]
